FAERS Safety Report 21329000 (Version 2)
Quarter: 2022Q3

REPORT INFORMATION
  Report Type: Report from Study
  Country: US (occurrence: US)
  Receive Date: 20220913
  Receipt Date: 20220919
  Transmission Date: 20221027
  Serious: No
  Sender: FDA-Public Use
  Company Number: US-AMGEN-USASP2022157545

PATIENT
  Age: 56 Year
  Sex: Male

DRUGS (2)
  1. OTEZLA [Suspect]
     Active Substance: APREMILAST
     Indication: Psoriatic arthropathy
     Dosage: 30 MILLIGRAM, BID
     Route: 065
  2. OTEZLA [Suspect]
     Active Substance: APREMILAST
     Dosage: 30 MILLIGRAM, BID
     Route: 065
     Dates: start: 2019

REACTIONS (10)
  - Peripheral swelling [Not Recovered/Not Resolved]
  - Product supply issue [Unknown]
  - Tremor [Unknown]
  - Gastric disorder [Recovered/Resolved]
  - Headache [Recovered/Resolved]
  - Gastrooesophageal reflux disease [Unknown]
  - Dyspepsia [Unknown]
  - Joint swelling [Not Recovered/Not Resolved]
  - Loss of personal independence in daily activities [Not Recovered/Not Resolved]
  - Pain in extremity [Not Recovered/Not Resolved]

NARRATIVE: CASE EVENT DATE: 20220901
